FAERS Safety Report 20794783 (Version 5)
Quarter: 2022Q3

REPORT INFORMATION
  Report Type: Spontaneous
  Country: CA (occurrence: CA)
  Receive Date: 20220506
  Receipt Date: 20220910
  Transmission Date: 20221027
  Serious: Yes (Other)
  Sender: FDA-Public Use
  Company Number: CA-CELLTRION INC.-2022CA005919

PATIENT

DRUGS (6)
  1. INFLECTRA [Suspect]
     Active Substance: INFLIXIMAB-DYYB
     Indication: Crohn^s disease
     Dosage: INDUCTION AT 0, 2 AND 6 WEEKS, THEN EVERY 8 WEEKS
     Route: 041
     Dates: start: 20191011
  2. INFLECTRA [Suspect]
     Active Substance: INFLIXIMAB-DYYB
     Dosage: INDUCTION AT 0, 2 AND 6 WEEKS, THEN EVERY 8 WEEKS
     Route: 041
     Dates: start: 20220315
  3. INFLECTRA [Suspect]
     Active Substance: INFLIXIMAB-DYYB
     Dosage: AT 0, 2 AND 6 WEEKS, THEN EVERY 8 WEEKS
     Route: 041
     Dates: start: 20220510
  4. INFLECTRA [Suspect]
     Active Substance: INFLIXIMAB-DYYB
     Dosage: AT 0, 2 AND 6 WEEKS, THEN EVERY 8 WEEKS
     Route: 041
     Dates: start: 20220706
  5. INFLECTRA [Suspect]
     Active Substance: INFLIXIMAB-DYYB
     Dosage: AT 0, 2 AND 6 WEEKS, THEN EVERY 8 WEEKS
     Route: 041
     Dates: start: 20220830
  6. IMURAN [Concomitant]
     Active Substance: AZATHIOPRINE
     Dosage: 100 MG, 1X/DAY
     Route: 048
     Dates: start: 2013

REACTIONS (2)
  - Condition aggravated [Recovered/Resolved]
  - COVID-19 [Recovered/Resolved]

NARRATIVE: CASE EVENT DATE: 20220405
